FAERS Safety Report 10248169 (Version 1)
Quarter: 2014Q2

REPORT INFORMATION
  Report Type: Spontaneous
  Country: NL (occurrence: NL)
  Receive Date: 20140620
  Receipt Date: 20140620
  Transmission Date: 20141212
  Serious: Yes (Other)
  Sender: FDA-Public Use
  Company Number: NL-MYLANLABS-2014S1013581

PATIENT
  Age: 10 Year
  Sex: Female
  Weight: 44 kg

DRUGS (1)
  1. RISPERIDONE [Suspect]
     Indication: AUTISM
     Dosage: 0.2
     Route: 048
     Dates: start: 20140428, end: 20140528

REACTIONS (3)
  - Weight increased [Recovering/Resolving]
  - Therapeutic response changed [Recovering/Resolving]
  - Abnormal behaviour [Recovering/Resolving]
